FAERS Safety Report 16372019 (Version 1)
Quarter: 2019Q2

REPORT INFORMATION
  Report Type: Spontaneous
  Country: US (occurrence: US)
  Receive Date: 20190530
  Receipt Date: 20190530
  Transmission Date: 20190711
  Serious: Yes (Other)
  Sender: FDA-Public Use
  Company Number: US-PFIZER INC-2019228224

PATIENT
  Age: 53 Year
  Sex: Male
  Weight: 57 kg

DRUGS (1)
  1. GEMCITABINE HYDROCHLORIDE. [Suspect]
     Active Substance: GEMCITABINE HYDROCHLORIDE
     Indication: PANCREATIC CARCINOMA
     Dosage: 1730 MG, CYCLIC (1 AND DAYS 8, EVERY 21 DAYS)
     Route: 042
     Dates: start: 201903, end: 20190502

REACTIONS (5)
  - Neutrophil count increased [Unknown]
  - White blood cell count increased [Unknown]
  - Dysuria [Unknown]
  - Urinary tract infection [Unknown]
  - Blood urine present [Unknown]

NARRATIVE: CASE EVENT DATE: 20190523
